FAERS Safety Report 9786147 (Version 2)
Quarter: 2014Q1

REPORT INFORMATION
  Report Type: Spontaneous
  Country: BR (occurrence: BR)
  Receive Date: 20131227
  Receipt Date: 20140121
  Transmission Date: 20141002
  Serious: Yes (Hospitalization, Other)
  Sender: FDA-Public Use
  Company Number: BR-ASTRAZENECA-2013SE93203

PATIENT
  Age: 50 Year
  Sex: Female
  Weight: 49 kg

DRUGS (30)
  1. NEXIUM [Suspect]
     Indication: NERVOUSNESS
     Route: 048
     Dates: start: 2010
  2. NEXIUM [Suspect]
     Indication: GASTRITIS
     Route: 048
     Dates: start: 2010
  3. CIMZIA [Suspect]
     Indication: RHEUMATIC DISORDER
     Dosage: 200 MG/ML
     Route: 058
     Dates: start: 20131211
  4. CIMZIA [Suspect]
     Indication: OSTEOARTHRITIS
     Dosage: 200 MG/ML
     Route: 058
     Dates: start: 20131211
  5. CIMZIA [Suspect]
     Indication: RHEUMATIC DISORDER
     Route: 058
     Dates: start: 20131226
  6. CIMZIA [Suspect]
     Indication: OSTEOARTHRITIS
     Route: 058
     Dates: start: 20131226
  7. SIMPONI [Suspect]
     Indication: RHEUMATIC DISORDER
     Route: 065
     Dates: start: 2013, end: 2013
  8. SIMPONI [Suspect]
     Indication: OSTEOARTHRITIS
     Route: 065
     Dates: start: 2013, end: 2013
  9. SIMPONI [Suspect]
     Indication: RHEUMATIC DISORDER
     Route: 065
  10. SIMPONI [Suspect]
     Indication: OSTEOARTHRITIS
     Route: 065
  11. HUMIRA [Suspect]
     Indication: RHEUMATIC DISORDER
     Route: 065
     Dates: start: 2012, end: 201309
  12. HUMIRA [Suspect]
     Indication: OSTEOARTHRITIS
     Route: 065
     Dates: start: 2012, end: 201309
  13. OSTEOBAN 150MG [Concomitant]
     Indication: ARTHRITIS
     Dosage: MONTHLY
     Route: 048
     Dates: start: 2012
  14. TRAMAL [Concomitant]
     Indication: PAIN IN EXTREMITY
     Dosage: 20 DROPS INTERMITTENT
     Route: 048
     Dates: start: 2008
  15. CHLOROQUINE DIPHOSPHATE (COMPOUNDED MEDICATION) [Concomitant]
     Indication: RHEUMATIC DISORDER
     Route: 048
     Dates: start: 2012
  16. CLONIDINE 40MG (COMPOUNDED MEDICATION) [Concomitant]
     Indication: RHEUMATIC DISORDER
     Route: 048
     Dates: start: 2012
  17. MELOXICAM (COMPOUNDED MEDICATION) [Concomitant]
     Indication: RHEUMATIC DISORDER
     Route: 048
     Dates: start: 2012
  18. CALDE(COMPOUNDED MEDICATION) [Concomitant]
     Indication: RHEUMATIC DISORDER
     Route: 048
     Dates: start: 2012
  19. CARISOPRODOL 100MG (COMPOUNDED MEDICATION) [Concomitant]
     Indication: RHEUMATIC DISORDER
     Route: 048
     Dates: start: 2012
  20. GABAPENTIN [Concomitant]
     Indication: HERPES VIRUS INFECTION
     Route: 048
     Dates: start: 2013
  21. GABAPENTIN [Concomitant]
     Indication: HERPES VIRUS INFECTION
     Route: 048
  22. GABAPENTIN [Concomitant]
     Indication: HERPES VIRUS INFECTION
     Route: 048
  23. ARAVA [Concomitant]
     Indication: RHEUMATIC DISORDER
     Dosage: DAILY
     Route: 048
     Dates: start: 2008
  24. ZINCO PLUS [Concomitant]
     Indication: HERPES VIRUS INFECTION
     Dosage: DAILY
     Route: 048
     Dates: start: 201311
  25. ZINCO PLUS [Concomitant]
     Indication: PROPHYLAXIS
     Dosage: DAILY
     Route: 048
     Dates: start: 201311
  26. ACICLOVIR [Concomitant]
     Indication: HERPES VIRUS INFECTION
     Route: 048
     Dates: start: 2013, end: 2013
  27. UNSPECIFIED CORTICOSTEROID [Concomitant]
     Indication: HERPES VIRUS INFECTION
     Dates: start: 2013, end: 2013
  28. DEFLAZACORT [Concomitant]
     Indication: RHEUMATIC DISORDER
     Dates: end: 2012
  29. PANOLIDINA [Concomitant]
  30. DISPERDAM ZINC [Concomitant]

REACTIONS (8)
  - Arthropathy [Recovered/Resolved]
  - Rheumatic disorder [Unknown]
  - Application site erythema [Recovering/Resolving]
  - Skin burning sensation [Recovering/Resolving]
  - Eyelid cyst [Unknown]
  - Herpes virus infection [Recovering/Resolving]
  - Injection site hypersensitivity [Unknown]
  - Injection site urticaria [Unknown]
